FAERS Safety Report 6134514-3 (Version None)
Quarter: 2009Q1

REPORT INFORMATION
  Report Type: 
  Country: None (occurrence: None)
  Receive Date: 20090327
  Receipt Date: 20090324
  Transmission Date: 20090719
  Serious: Yes (Death)
  Sender: FDA-Public Use
  Company Number: JP-BRISTOL-MYERS SQUIBB COMPANY-14531495

PATIENT
  Age: 40 Year
  Sex: Male

DRUGS (8)
  1. VEPESID [Suspect]
     Indication: TESTIS CANCER
     Dosage: CYCLE 1 ON 17NOV08:120MG/DAY X5;ROUTE DR CYC 2 UNK-12DEC08:85MG/DAY X5;TOTAL DOSE 1025 MG
     Dates: start: 20081117, end: 20081212
  2. RANDA [Suspect]
     Indication: TESTIS CANCER
     Dosage: CYCLE 1 ON 17NOV08: 25MG/DAY X5;ROUTE DR CYC2 UNK-12DEC08:17MG/DAY X5;TOTAL DOSE 210MG
     Dates: start: 20081117, end: 20081212
  3. BLEO [Suspect]
     Indication: TESTIS CANCER
     Dosage: CYCLE 1 ON 18NOV08: 12.5MG/DAY X2;ROUTE DR CYCLE 2 ON UNK-23DEC08: 8.5MG/DAY X3 49.5MG(TOTAL DOSE)
     Dates: start: 20081118, end: 20081223
  4. NASEA [Concomitant]
     Dosage: ROUTE DR
     Dates: start: 20081117, end: 20081122
  5. DECADRON [Concomitant]
     Dosage: ROUTE DR
     Dates: start: 20081117, end: 20081121
  6. SERENACE [Concomitant]
     Dosage: ROUTE DR
     Dates: start: 20081122, end: 20081123
  7. GASTER [Concomitant]
     Dosage: ROUTE DR
     Dates: start: 20081121, end: 20081123
  8. INSULIN [Concomitant]

REACTIONS (1)
  - INTERSTITIAL LUNG DISEASE [None]
